FAERS Safety Report 14324902 (Version 2)
Quarter: 2018Q1

REPORT INFORMATION
  Report Type: Report from Study
  Country: US (occurrence: US)
  Receive Date: 20171226
  Receipt Date: 20180221
  Transmission Date: 20180509
  Serious: Yes (Death)
  Sender: FDA-Public Use
  Company Number: US-CLOVIS ONCOLOGY-CLO-2017-001313

PATIENT
  Sex: Male

DRUGS (1)
  1. RUBRACA [Suspect]
     Active Substance: RUCAPARIB CAMSYLATE
     Indication: PANCREATIC CARCINOMA
     Dosage: 600 MG, BID
     Route: 048
     Dates: start: 20170912

REACTIONS (4)
  - Gastrointestinal disorder [Unknown]
  - Off label use [Unknown]
  - Lung disorder [Fatal]
  - Abdominal pain upper [Unknown]
